FAERS Safety Report 25534195 (Version 2)
Quarter: 2025Q4

REPORT INFORMATION
  Report Type: Spontaneous
  Country: EU (occurrence: EU)
  Receive Date: 20250709
  Receipt Date: 20251006
  Transmission Date: 20260117
  Serious: Yes (Hospitalization, Other)
  Sender: AUROBINDO
  Company Number: EU-ROCHE-10000311525

PATIENT
  Age: 46 Year
  Sex: Female
  Weight: 64 kg

DRUGS (6)
  1. CARBOPLATIN [Suspect]
     Active Substance: CARBOPLATIN
     Indication: Triple negative breast cancer
     Dosage: UNK (ON DAYS 1 EVERY 3 WEEKS.ON 27-DEC-2024, SHE RECEIVED THE MOST RECENT DOSE OF CARBOPLATINE (587
     Route: 042
     Dates: start: 20241025
  2. DOXORUBICIN [Suspect]
     Active Substance: DOXORUBICIN
     Indication: Triple negative breast cancer
     Dosage: UNK (LAST DOSE (110 MG) ON 28/MAR/2025)
     Route: 042
     Dates: start: 20250124
  3. PACLITAXEL [Suspect]
     Active Substance: PACLITAXEL
     Indication: Triple negative breast cancer
     Dosage: UNK (ON DAYS 1, 8, AND 15, EVERY 3 WEEKSON 27-DEC-2024, SHE RECEIVED THE MOST RECENT DOSE OF NAB-PAC
     Route: 042
     Dates: start: 20241025
  4. ATEZOLIZUMAB [Suspect]
     Active Substance: ATEZOLIZUMAB
     Indication: Triple negative breast cancer
     Dosage: 1200 MILLIGRAM, 3 WEEK (LAST DOSE ON 16/MAY/2025)
     Route: 042
     Dates: start: 20241025
  5. TIRAGOLUMAB [Suspect]
     Active Substance: TIRAGOLUMAB
     Indication: Triple negative breast cancer
     Dosage: 600 MILLIGRAM, 3 WEEK (LAST DOSE ON 16/MAY/2025)
     Route: 042
     Dates: start: 20241025
  6. CYCLOPHOSPHAMIDE [Suspect]
     Active Substance: CYCLOPHOSPHAMIDE
     Indication: Triple negative breast cancer
     Dosage: UNK (LAST DOSE (1098 MG) ON 28/MAR/2025)
     Route: 042
     Dates: start: 20250124

REACTIONS (1)
  - Myocarditis [Recovered/Resolved]

NARRATIVE: CASE EVENT DATE: 20250606
